FAERS Safety Report 7044453-1 (Version None)
Quarter: 2010Q4

REPORT INFORMATION
  Report Type: 
  Country: None (occurrence: None)
  Receive Date: 20101014
  Receipt Date: 20101005
  Transmission Date: 20110411
  Serious: Yes (Hospitalization, Other)
  Sender: FDA-Public Use
  Company Number: US-US-EMD SERONO, INC.-238611K09USA

PATIENT
  Sex: Female

DRUGS (8)
  1. REBIF [Suspect]
     Indication: MULTIPLE SCLEROSIS
     Route: 058
     Dates: start: 20080118, end: 20100901
  2. REBIF [Suspect]
     Route: 058
     Dates: start: 20101001
  3. STEROID [Suspect]
  4. VITAMIN D [Concomitant]
     Route: 065
  5. VITAMIN D [Concomitant]
     Route: 065
     Dates: start: 20090101
  6. VITAMIN B-12 [Concomitant]
     Route: 065
  7. VITAMIN B-12 [Concomitant]
     Route: 065
     Dates: start: 20090101
  8. PAIN MEDICATION [Concomitant]
     Indication: HEADACHE

REACTIONS (5)
  - ARTHRALGIA [None]
  - DERMATITIS ALLERGIC [None]
  - GAIT DISTURBANCE [None]
  - OSTEONECROSIS [None]
  - PAIN IN EXTREMITY [None]
